FAERS Safety Report 9678274 (Version 2)
Quarter: 2013Q4

REPORT INFORMATION
  Report Type: Spontaneous
  Country: US (occurrence: US)
  Receive Date: 20131108
  Receipt Date: 20131202
  Transmission Date: 20140711
  Serious: Yes (Other)
  Sender: FDA-Public Use
  Company Number: US-PFIZER INC-2013316805

PATIENT
  Age: 63 Year
  Sex: Female
  Weight: 72.6 kg

DRUGS (2)
  1. PREMARIN [Suspect]
     Indication: VULVOVAGINAL DRYNESS
     Dosage: UNK, 1X/DAY
     Route: 067
     Dates: start: 20131003, end: 201310
  2. PREMARIN [Suspect]
     Dosage: UNK, 2X/WEEK
     Route: 067
     Dates: start: 201310, end: 20131029

REACTIONS (1)
  - Arthropathy [Unknown]
